FAERS Safety Report 17691535 (Version 1)
Quarter: 2020Q2

REPORT INFORMATION
  Report Type: Report from Study
  Country: US (occurrence: US)
  Receive Date: 20200422
  Receipt Date: 20200422
  Transmission Date: 20200714
  Serious: No
  Sender: FDA-Public Use
  Company Number: NVSC2020US106983

PATIENT
  Age: 39 Year
  Sex: Male

DRUGS (1)
  1. XIIDRA [Suspect]
     Active Substance: LIFITEGRAST
     Indication: KERATITIS
     Dosage: 1 DRP, BID (1 DROP EACH EYE)
     Route: 047

REACTIONS (2)
  - Overdose [Unknown]
  - Product dose omission [Unknown]
